FAERS Safety Report 9099698 (Version 6)
Quarter: 2015Q3

REPORT INFORMATION
  Report Type: Report from Study
  Country: FR (occurrence: FR)
  Receive Date: 20130214
  Receipt Date: 20150814
  Transmission Date: 20151125
  Serious: Yes (Hospitalization)
  Sender: FDA-Public Use
  Company Number: FR-ROCHE-1187176

PATIENT
  Age: 68 Year
  Sex: Female
  Weight: 69 kg

DRUGS (21)
  1. OXYNORM [Concomitant]
     Active Substance: OXYCODONE HYDROCHLORIDE
     Indication: BONE PAIN
     Route: 065
     Dates: start: 20111219
  2. ARTELAC (FRANCE) [Concomitant]
     Route: 065
     Dates: start: 20101213
  3. LOVENOX [Concomitant]
     Active Substance: ENOXAPARIN SODIUM
     Route: 065
     Dates: start: 20120131
  4. DOLIPRANE [Concomitant]
     Active Substance: ACETAMINOPHEN
     Indication: BONE PAIN
     Route: 065
     Dates: start: 20120121
  5. NEURONTIN [Concomitant]
     Active Substance: GABAPENTIN
     Indication: NEURALGIA
     Route: 065
     Dates: start: 20120127
  6. PERTUZUMAB [Suspect]
     Active Substance: PERTUZUMAB
     Dosage: LOADING DOSE (840 MG)
     Route: 042
     Dates: start: 20120120, end: 20120120
  7. TRASTUZUMAB EMTANSINE [Suspect]
     Active Substance: ADO-TRASTUZUMAB EMTANSINE
     Dosage: LAST DOSE PRIOR TO EVENT TAKEN: 260 MG ON 11/JAN/2013
     Route: 042
  8. UVEDOSE [Concomitant]
     Active Substance: CHOLECALCIFEROL
     Route: 065
     Dates: start: 20120126
  9. DUROGESIC [Concomitant]
     Active Substance: FENTANYL
     Indication: BONE PAIN
     Route: 065
     Dates: start: 20120131
  10. PROFENID [Concomitant]
     Active Substance: KETOPROFEN
     Indication: INFLAMMATION
     Route: 065
     Dates: start: 20120201
  11. ZOPHREN [Concomitant]
     Active Substance: ONDANSETRON
     Indication: PROPHYLAXIS OF NAUSEA AND VOMITING
     Route: 065
     Dates: start: 20120120
  12. SOLU-MEDROL [Concomitant]
     Active Substance: METHYLPREDNISOLONE SODIUM SUCCINATE
     Route: 065
     Dates: start: 20120120
  13. CACIT D3 [Concomitant]
     Active Substance: CALCIUM\CHOLECALCIFEROL
     Route: 065
     Dates: start: 20120209
  14. SOLUPRED (FRANCE) [Concomitant]
     Active Substance: PREDNISOLONE
     Indication: CHOLECYSTITIS
     Route: 065
     Dates: start: 20130125, end: 20130127
  15. PERTUZUMAB [Suspect]
     Active Substance: PERTUZUMAB
     Indication: BREAST CANCER METASTATIC
     Dosage: MAINTANANCE DOSE (420 MG); LAST DOSE PRIOR TO EVENT: 11/JAN/2013
     Route: 042
  16. TRASTUZUMAB EMTANSINE [Suspect]
     Active Substance: ADO-TRASTUZUMAB EMTANSINE
     Indication: BREAST CANCER METASTATIC
     Dosage: LOADING DOSE: 3.6 MG/KG; LAST DOSE PRIOR TO EVENT: 11/JAN/2013.
     Route: 042
     Dates: start: 20120120
  17. RIVOTRIL [Concomitant]
     Active Substance: CLONAZEPAM
     Indication: BACK PAIN
     Route: 065
     Dates: start: 20120423
  18. LEVOTHYROX [Concomitant]
     Active Substance: LEVOTHYROXINE
     Indication: HYPOTHYROIDISM
     Route: 065
     Dates: start: 1996
  19. TOBREX [Concomitant]
     Active Substance: TOBRAMYCIN
     Route: 065
     Dates: start: 20101213
  20. OXYCONTIN [Concomitant]
     Active Substance: OXYCODONE HYDROCHLORIDE
     Indication: BONE PAIN
     Route: 065
     Dates: start: 20111219
  21. ZOMETA [Concomitant]
     Active Substance: ZOLEDRONIC ACID
     Route: 065
     Dates: start: 20120201

REACTIONS (1)
  - Cholecystitis [Recovered/Resolved]

NARRATIVE: CASE EVENT DATE: 20130131
